FAERS Safety Report 6154101-0 (Version None)
Quarter: 2009Q2

REPORT INFORMATION
  Report Type: 
  Country: None (occurrence: None)
  Receive Date: 20090414
  Receipt Date: 20090406
  Transmission Date: 20091009
  Serious: Yes (Hospitalization, Other)
  Sender: FDA-Public Use
  Company Number: GB-ROCHE-626021

PATIENT
  Age: 66 Year
  Sex: Female

DRUGS (5)
  1. CAPECITABINE [Suspect]
     Indication: CHEMOTHERAPY
     Dosage: TWO CYCLES
     Route: 065
     Dates: start: 20060901
  2. CAPECITABINE [Suspect]
     Dosage: DOSE REDUCED FOR LAST TWO CYCLES
     Route: 065
     Dates: end: 20061201
  3. TRASTUZUMAB [Suspect]
     Dosage: FIRST DOSE
     Route: 065
     Dates: start: 20070109
  4. TRASTUZUMAB [Suspect]
     Route: 065
     Dates: end: 20070403
  5. EPIRUBICIN [Suspect]
     Indication: CHEMOTHERAPY
     Dosage: PATIENT RECEIVED FOUR CYCLES
     Route: 065
     Dates: start: 20060901, end: 20061201

REACTIONS (2)
  - RADIATION FIBROSIS - LUNG [None]
  - RADIATION MYELOPATHY [None]
